FAERS Safety Report 20966797 (Version 1)
Quarter: 2022Q2

REPORT INFORMATION
  Report Type: Spontaneous
  Country: FR (occurrence: FR)
  Receive Date: 20220616
  Receipt Date: 20220616
  Transmission Date: 20220721
  Serious: Yes (Hospitalization, Other)
  Sender: FDA-Public Use
  Company Number: None

PATIENT

DRUGS (7)
  1. LAMICTAL [Suspect]
     Active Substance: LAMOTRIGINE
     Indication: Bipolar disorder
     Dosage: 150 MG, QD
     Route: 065
     Dates: start: 201903
  2. TERALITHE [Suspect]
     Active Substance: LITHIUM CARBONATE
     Indication: Bipolar disorder
     Dosage: 875 MG, QD (1.5 IN THE MORNING AND 2 IN THE EVENING)
     Route: 048
     Dates: start: 201910
  3. LEVOTHYROXINE [Concomitant]
     Active Substance: LEVOTHYROXINE
     Indication: Hypothyroidism
     Dosage: UNK
     Route: 048
  4. PRAZEPAM [Concomitant]
     Active Substance: PRAZEPAM
     Indication: Anxiety
     Dosage: UNK
     Route: 048
  5. PRAZEPAM [Concomitant]
     Active Substance: PRAZEPAM
     Indication: Agitation
  6. LOXAPINE [Concomitant]
     Active Substance: LOXAPINE
     Indication: Anxiety
     Dosage: BETWEEN 15 AND 50MG/DAY
     Route: 065
     Dates: start: 201903
  7. LOXAPINE [Concomitant]
     Active Substance: LOXAPINE
     Indication: Agitation

REACTIONS (2)
  - Intracranial pressure increased [Recovering/Resolving]
  - Papilloedema [Recovering/Resolving]

NARRATIVE: CASE EVENT DATE: 20220330
